FAERS Safety Report 11909111 (Version 1)
Quarter: 2016Q1

REPORT INFORMATION
  Report Type: Spontaneous
  Country: GB (occurrence: GB)
  Receive Date: 20160112
  Receipt Date: 20160112
  Transmission Date: 20160526
  Serious: Yes (Other)
  Sender: FDA-Public Use
  Company Number: GB-AMGEN-GBRSP2015021149

PATIENT
  Age: 60 Year
  Sex: Female

DRUGS (2)
  1. ENBREL [Suspect]
     Active Substance: ETANERCEPT
     Indication: ANKYLOSING SPONDYLITIS
     Dosage: 50 MG, WEEKLY
     Route: 065
     Dates: start: 20141209
  2. METHOTREXATE [Concomitant]
     Active Substance: METHOTREXATE
     Indication: RHEUMATIC DISORDER
     Dosage: 20 MG, WEEKLY ON SUNDAY

REACTIONS (7)
  - Pain in extremity [Unknown]
  - Drug ineffective [Unknown]
  - Lower respiratory tract infection [Recovered/Resolved]
  - Injection site pruritus [Unknown]
  - Injection site reaction [Unknown]
  - Diarrhoea [Unknown]
  - Urinary tract infection [Recovered/Resolved]
